FAERS Safety Report 13066533 (Version 3)
Quarter: 2017Q1

REPORT INFORMATION
  Report Type: Report from Study
  Country: US (occurrence: US)
  Receive Date: 20161227
  Receipt Date: 20170210
  Transmission Date: 20170428
  Serious: Yes (Hospitalization, Other)
  Sender: FDA-Public Use
  Company Number: US-GILEAD-2016-0249331

PATIENT
  Age: 79 Year
  Sex: Female
  Weight: 103.4 kg

DRUGS (20)
  1. LETROZOLE. [Concomitant]
     Active Substance: LETROZOLE
  2. AMITIZA [Concomitant]
     Active Substance: LUBIPROSTONE
  3. XARELTO [Concomitant]
     Active Substance: RIVAROXABAN
  4. IBUPROFEN. [Concomitant]
     Active Substance: IBUPROFEN
  5. COREG [Concomitant]
     Active Substance: CARVEDILOL
  6. ASPIR 81 [Concomitant]
  7. CALCIUM MAGNESIUM ZINC FORTE [Concomitant]
  8. NORCO [Concomitant]
     Active Substance: ACETAMINOPHEN\HYDROCODONE BITARTRATE
  9. LACTOBACILLUS ACIDOPHILUS W/LACTOBA/00203201/ [Concomitant]
  10. AMBRISENTAN [Suspect]
     Active Substance: AMBRISENTAN
     Indication: PULMONARY HYPERTENSION
     Dosage: 5 MG, BID
     Route: 065
     Dates: start: 20161012
  11. LEVOTHYROXINE. [Concomitant]
     Active Substance: LEVOTHYROXINE
  12. NEURONTIN [Concomitant]
     Active Substance: GABAPENTIN
  13. METOLAZONE. [Concomitant]
     Active Substance: METOLAZONE
  14. COLACE [Concomitant]
     Active Substance: DOCUSATE SODIUM
  15. PEPCID                             /00305201/ [Concomitant]
     Active Substance: ALUMINUM HYDROXIDE\MAGNESIUM CARBONATE
  16. POTASSIUM CHLORIDE. [Concomitant]
     Active Substance: POTASSIUM CHLORIDE
  17. ZOFRAN [Concomitant]
     Active Substance: ONDANSETRON HYDROCHLORIDE
  18. ADVAIR HFA [Concomitant]
     Active Substance: FLUTICASONE PROPIONATE\SALMETEROL XINAFOATE
  19. FUROSEMIDE. [Concomitant]
     Active Substance: FUROSEMIDE
  20. OMEGA 3 FISH OIL                   /01334101/ [Concomitant]
     Active Substance: FISH OIL

REACTIONS (7)
  - Cardiac failure congestive [Unknown]
  - Gastrointestinal haemorrhage [Unknown]
  - Anaemia [Unknown]
  - Dyspnoea [Recovered/Resolved]
  - Pulmonary oedema [Unknown]
  - Oedema [Unknown]
  - Off label use [Not Recovered/Not Resolved]
